FAERS Safety Report 13712687 (Version 3)
Quarter: 2017Q3

REPORT INFORMATION
  Report Type: Spontaneous
  Country: US (occurrence: US)
  Receive Date: 20170703
  Receipt Date: 20170816
  Transmission Date: 20171127
  Serious: Yes (Other)
  Sender: FDA-Public Use
  Company Number: US-MYLANLABS-2017M1039854

PATIENT

DRUGS (3)
  1. MIDODRINE [Suspect]
     Active Substance: MIDODRINE
     Indication: PRODUCT USED FOR UNKNOWN INDICATION
     Dosage: UNK
  2. NORTHERA [Suspect]
     Active Substance: DROXIDOPA
     Dosage: 500 MG, TID
     Route: 048
  3. NORTHERA [Suspect]
     Active Substance: DROXIDOPA
     Indication: PRODUCT USED FOR UNKNOWN INDICATION
     Dosage: 400 MG, TID
     Route: 048
     Dates: start: 20170608

REACTIONS (10)
  - Blood urine present [Unknown]
  - Hypersomnia [Unknown]
  - Gait disturbance [Unknown]
  - Kidney infection [Unknown]
  - Head discomfort [Unknown]
  - Cerebrovascular accident [Unknown]
  - Blood pressure fluctuation [Unknown]
  - Asthenia [Unknown]
  - Blood pressure systolic increased [Unknown]
  - Dizziness [Unknown]

NARRATIVE: CASE EVENT DATE: 20170615
